FAERS Safety Report 4382973-9 (Version None)
Quarter: 2004Q2

REPORT INFORMATION
  Report Type: 
  Country: None (occurrence: None)
  Receive Date: 20040617
  Receipt Date: 20040608
  Transmission Date: 20050107
  Serious: Yes (Other)
  Sender: FDA-Public Use
  Company Number: CIP04001230

PATIENT
  Sex: Male

DRUGS (1)
  1. DANTRIUM [Suspect]
     Indication: NEUROLEPTIC MALIGNANT SYNDROME
     Dosage: IV NOS
     Route: 042

REACTIONS (2)
  - CLONIC CONVULSION [None]
  - DYSPHAGIA [None]
